FAERS Safety Report 21103234 (Version 2)
Quarter: 2022Q4

REPORT INFORMATION
  Report Type: Spontaneous
  Country: ZA (occurrence: ZA)
  Receive Date: 20220720
  Receipt Date: 20221003
  Transmission Date: 20230113
  Serious: No
  Sender: FDA-Public Use
  Company Number: ZA-ALLERGAN-2221940US

PATIENT
  Sex: Male

DRUGS (3)
  1. OZURDEX [Suspect]
     Active Substance: DEXAMETHASONE
     Indication: Cystoid macular oedema
     Dosage: 0.7 MG, SINGLE
     Route: 031
     Dates: start: 20210913, end: 20210913
  2. OZURDEX [Suspect]
     Active Substance: DEXAMETHASONE
     Indication: Cystoid macular oedema
     Dosage: 0.7 MG, SINGLE
     Route: 031
  3. OZURDEX [Suspect]
     Active Substance: DEXAMETHASONE
     Indication: Cystoid macular oedema
     Dosage: 0.7 MG, SINGLE
     Route: 031

REACTIONS (3)
  - Off label use [Unknown]
  - Drug ineffective [Unknown]
  - Therapeutic response shortened [Unknown]
